FAERS Safety Report 25497949 (Version 1)
Quarter: 2025Q3

REPORT INFORMATION
  Report Type: Spontaneous
  Country: JP (occurrence: JP)
  Receive Date: 20250701
  Receipt Date: 20250701
  Transmission Date: 20251021
  Serious: Yes (Hospitalization)
  Sender: PHARMACOSMOS A/S
  Company Number: JP-NEBO-699686

PATIENT
  Age: 78 Year
  Sex: Male

DRUGS (1)
  1. FERRIC DERISOMALTOSE [Suspect]
     Active Substance: FERRIC DERISOMALTOSE
     Indication: Product used for unknown indication

REACTIONS (3)
  - Hypophagia [Unknown]
  - Hypophosphataemia [Recovered/Resolved]
  - Sepsis [Unknown]
